FAERS Safety Report 8119196-3 (Version None)
Quarter: 2012Q1

REPORT INFORMATION
  Report Type: 
  Country: None (occurrence: None)
  Receive Date: 20120207
  Receipt Date: 20120124
  Transmission Date: 20120608
  Serious: Yes (Hospitalization)
  Sender: FDA-Public Use
  Company Number: DE-ROCHE-1002764

PATIENT
  Sex: Male
  Weight: 92.5 kg

DRUGS (18)
  1. CARBOPLATIN [Suspect]
     Indication: NON-SMALL CELL LUNG CANCER
     Dosage: 5 AUC
     Route: 042
     Dates: start: 20110923
  2. CARBOPLATIN [Suspect]
     Dosage: 4 AUC
     Dates: start: 20111014
  3. RAMIPRIL [Concomitant]
     Indication: HYPERTENSION
     Dosage: 1DF
  4. METOCLOPRAMIDE [Concomitant]
     Indication: NAUSEA
     Dosage: DOSE: 36 DROPS PRN 1DFX4/DAY
  5. SIMVASTATIN [Concomitant]
     Indication: HYPERLIPIDAEMIA
     Dosage: 1DF
  6. PEMETREXED DISODIUM [Suspect]
     Dates: start: 20111014
  7. SALMETEROL XINAFOATE/FLUTICASONE PROPIONATE [Concomitant]
     Indication: CHRONIC OBSTRUCTIVE PULMONARY DISEASE
     Dosage: DOSE: 50/250UG 1DF
  8. ONDANSETRON [Concomitant]
     Indication: NAUSEA
     Dosage: PRN 1DFX2/D
  9. METOPROLOL [Concomitant]
     Indication: HYPERTENSION
     Dosage: 1DF
  10. ASPIRIN [Concomitant]
     Indication: MYOCARDIAL INFARCTION
     Dosage: 1DF
  11. TIOPRONIN [Concomitant]
     Indication: CHRONIC OBSTRUCTIVE PULMONARY DISEASE
  12. FUROSEMIDE [Concomitant]
     Indication: HYPERTENSION
  13. PEMETREXED DISODIUM [Suspect]
     Indication: NON-SMALL CELL LUNG CANCER
     Route: 042
     Dates: start: 20110923
  14. POTASSIUM [Concomitant]
     Indication: PROPHYLAXIS
  15. AMIODARONE HCL [Concomitant]
     Indication: ATRIAL FIBRILLATION
     Dosage: 1DF
  16. AVASTIN [Suspect]
     Indication: NON-SMALL CELL LUNG CANCER
     Route: 042
     Dates: start: 20110923
  17. FOLSAN [Concomitant]
     Indication: PREMEDICATION
     Dosage: 1DF
  18. PANTOPRAZOLE [Concomitant]
     Indication: PROPHYLAXIS
     Dosage: 1DF

REACTIONS (4)
  - PNEUMONIA [None]
  - LUNG INFECTION [None]
  - DIARRHOEA [None]
  - CHOLECYSTITIS [None]
